FAERS Safety Report 6022793-2 (Version None)
Quarter: 2008Q4

REPORT INFORMATION
  Report Type: 
  Country: None (occurrence: None)
  Receive Date: 20081230
  Receipt Date: 20081218
  Transmission Date: 20090506
  Serious: Yes (Congenital Anomaly, Other)
  Sender: FDA-Public Use
  Company Number: US-ELI_LILLY_AND_COMPANY-US200812005435

PATIENT

DRUGS (3)
  1. CYMBALTA [Suspect]
  2. VICODIN [Concomitant]
  3. PRENATAL VITAMINS                  /01549301/ [Concomitant]

REACTIONS (6)
  - ANAL ATRESIA [None]
  - CONGENITAL NOSE MALFORMATION [None]
  - DRUG EXPOSURE DURING PREGNANCY [None]
  - POLYDACTYLY [None]
  - SINGLE UMBILICAL ARTERY [None]
  - SMALL FOR DATES BABY [None]
